FAERS Safety Report 4949481-5 (Version None)
Quarter: 2006Q1

REPORT INFORMATION
  Report Type: 
  Country: None (occurrence: None)
  Receive Date: 20060321
  Receipt Date: 20060307
  Transmission Date: 20060701
  Serious: Yes (Hospitalization)
  Sender: FDA-Public Use
  Company Number: GB-NOVOPROD-251509

PATIENT
  Age: 36 Year
  Sex: Male

DRUGS (2)
  1. NORDITROPIN NORDIFLEX [Suspect]
     Indication: DRUG USE FOR UNKNOWN INDICATION
     Dosage: 4 IU, UNK
  2. NORDITROPIN NORDIFLEX [Suspect]
     Dosage: 6 UNK, UNK

REACTIONS (1)
  - LARYNGOCELE [None]
